FAERS Safety Report 20731115 (Version 1)
Quarter: 2022Q2

REPORT INFORMATION
  Report Type: Spontaneous
  Country: CN (occurrence: CN)
  Receive Date: 20220420
  Receipt Date: 20220420
  Transmission Date: 20220721
  Serious: Yes (Hospitalization)
  Sender: FDA-Public Use
  Company Number: CN-009507513-2204CHN005356

PATIENT
  Age: 75 Year
  Sex: Male
  Weight: 50 kg

DRUGS (2)
  1. CILASTATIN SODIUM\IMIPENEM [Suspect]
     Active Substance: CILASTATIN SODIUM\IMIPENEM
     Indication: Rheumatoid arthritis
     Dosage: 500 MG, TID, DRIP RATE 40 TO 45 DRIPS/MIN
     Route: 041
     Dates: start: 20220406, end: 20220407
  2. SODIUM CHLORIDE [Concomitant]
     Active Substance: SODIUM CHLORIDE
     Indication: Medication dilution
     Dosage: 100 ML, TID
     Route: 041
     Dates: start: 20220406, end: 20220407

REACTIONS (5)
  - Mental disorder [Recovering/Resolving]
  - Disorientation [Recovering/Resolving]
  - Halo vision [Recovering/Resolving]
  - Communication disorder [Recovering/Resolving]
  - Product use in unapproved indication [Unknown]

NARRATIVE: CASE EVENT DATE: 20220406
